FAERS Safety Report 5088969-6 (Version None)
Quarter: 2006Q3

REPORT INFORMATION
  Report Type: 
  Country: None (occurrence: None)
  Receive Date: 20060825
  Receipt Date: 20060821
  Transmission Date: 20061208
  Serious: Yes (Other)
  Sender: FDA-Public Use
  Company Number: US-SANOFI-SYNTHELABO-A03200605236

PATIENT
  Sex: Female
  Weight: 74.8 kg

DRUGS (12)
  1. LIPITOR [Concomitant]
     Route: 048
     Dates: start: 20060501
  2. LIPITOR [Concomitant]
     Route: 048
     Dates: start: 20030101, end: 20060501
  3. BELLADENAL [Concomitant]
     Route: 048
     Dates: start: 20040101
  4. CYMBALTA [Concomitant]
     Route: 048
     Dates: start: 20060401
  5. TRAZODONE HCL [Concomitant]
     Route: 048
     Dates: start: 20030101
  6. SENOKOT [Concomitant]
     Route: 048
  7. DIAZEPAM [Concomitant]
     Route: 048
     Dates: start: 20020101
  8. GABITRIL [Concomitant]
     Route: 048
  9. NEURONTIN [Concomitant]
     Route: 048
     Dates: start: 20040101
  10. RANITIDINE [Concomitant]
     Route: 048
     Dates: start: 20040101
  11. FENTANYL [Suspect]
     Indication: PAIN
     Dosage: 1 PATCH EVERY 72 HOURS
     Route: 062
     Dates: start: 20051201
  12. AMBIEN [Suspect]
     Indication: SLEEP DISORDER
     Dosage: UNK
     Route: 048
     Dates: start: 20060601, end: 20060601

REACTIONS (6)
  - DRUG INEFFECTIVE [None]
  - FALL [None]
  - FEELING ABNORMAL [None]
  - LOSS OF CONSCIOUSNESS [None]
  - RIB FRACTURE [None]
  - SPINAL COMPRESSION FRACTURE [None]
